FAERS Safety Report 9925486 (Version 1)
Quarter: 2014Q1

REPORT INFORMATION
  Report Type: Report from Study
  Country: US (occurrence: US)
  Receive Date: 20140226
  Receipt Date: 20140226
  Transmission Date: 20141002
  Serious: Yes (Hospitalization, Other)
  Sender: FDA-Public Use
  Company Number: US-ALEXION-A201400626

PATIENT
  Age: 67 Year
  Sex: Female

DRUGS (1)
  1. ECULIZUMAB [Suspect]
     Indication: HAEMOLYTIC URAEMIC SYNDROME
     Dosage: UNK MG, UNK
     Route: 042
     Dates: start: 20131102

REACTIONS (2)
  - Fluid overload [Not Recovered/Not Resolved]
  - Delirium [Not Recovered/Not Resolved]
